FAERS Safety Report 25881765 (Version 1)
Quarter: 2025Q4

REPORT INFORMATION
  Report Type: Spontaneous
  Country: US (occurrence: US)
  Receive Date: 20251005
  Receipt Date: 20251005
  Transmission Date: 20260118
  Serious: No
  Sender: ELI LILLY AND COMPANY
  Company Number: US-ELI_LILLY_AND_COMPANY-US202509025730

PATIENT
  Age: 67 Year
  Sex: Male

DRUGS (2)
  1. INSULIN LISPRO [Suspect]
     Active Substance: INSULIN LISPRO
     Indication: Diabetes mellitus
     Dosage: 10 U, TID
     Route: 065
     Dates: start: 20250911, end: 20250923
  2. TRULICITY [Suspect]
     Active Substance: DULAGLUTIDE
     Indication: Renal transplant
     Dosage: 0.75 U, UNKNOWN
     Route: 065
     Dates: start: 20250911, end: 20250923

REACTIONS (1)
  - Blood glucose increased [Unknown]
